FAERS Safety Report 6828378-X (Version None)
Quarter: 2010Q3

REPORT INFORMATION
  Report Type: 
  Country: None (occurrence: None)
  Receive Date: 20100709
  Receipt Date: 20070207
  Transmission Date: 20110219
  Serious: No
  Sender: FDA-Public Use
  Company Number: US-PFIZER INC-2007010690

PATIENT
  Sex: Male
  Weight: 88.45 kg

DRUGS (10)
  1. CHANTIX [Suspect]
     Indication: SMOKING CESSATION THERAPY
     Dates: start: 20070205
  2. ZOCOR [Concomitant]
  3. CELEBREX [Concomitant]
  4. CARTIA XT [Concomitant]
  5. AMBIEN [Concomitant]
  6. MUCINEX [Concomitant]
  7. TYLENOL W/ CODEINE NO. 3 [Concomitant]
  8. VICODIN [Concomitant]
  9. ACETYLSALICYLIC ACID [Concomitant]
  10. COMMIT [Concomitant]
     Dates: start: 20070129

REACTIONS (2)
  - HEADACHE [None]
  - INSOMNIA [None]
